FAERS Safety Report 8378633-X (Version None)
Quarter: 2012Q2

REPORT INFORMATION
  Report Type: 
  Country: None (occurrence: None)
  Receive Date: 20120522
  Receipt Date: 20120112
  Transmission Date: 20120825
  Serious: No
  Sender: FDA-Public Use
  Company Number: US-ASTRAZENECA-2012SE02864

PATIENT
  Age: 57 Year
  Sex: Male

DRUGS (7)
  1. LISINOPRIL [Suspect]
     Route: 048
  2. NEXIUM [Concomitant]
  3. HYDROCORTISONE [Concomitant]
  4. OMEPRAZOLE [Suspect]
     Route: 048
  5. ATACAND [Concomitant]
  6. IBUPROFEN [Concomitant]
  7. KETOROLAC TROMETHAMINE [Concomitant]

REACTIONS (5)
  - ARTHRALGIA [None]
  - LIMB DISCOMFORT [None]
  - NASAL CONGESTION [None]
  - BLOOD GLUCOSE INCREASED [None]
  - MUSCULOSKELETAL DISCOMFORT [None]
